FAERS Safety Report 6724525-9 (Version None)
Quarter: 2010Q2

REPORT INFORMATION
  Report Type: 
  Country: None (occurrence: None)
  Receive Date: 20100513
  Receipt Date: 20100507
  Transmission Date: 20101027
  Serious: Yes (Other)
  Sender: FDA-Public Use
  Company Number: JP-PFIZER INC-2010058999

PATIENT

DRUGS (1)
  1. MEDROL [Suspect]
     Indication: PYREXIA
     Dosage: 4 MG PER DAY
     Route: 048

REACTIONS (1)
  - BODY TEMPERATURE DECREASED [None]
